FAERS Safety Report 5422204-1 (Version None)
Quarter: 2007Q3

REPORT INFORMATION
  Report Type: 
  Country: None (occurrence: None)
  Receive Date: 20070802
  Receipt Date: 20070802
  Transmission Date: 20080115
  Serious: No
  Sender: FDA-Public Use
  Company Number: None

PATIENT
  Age: 71 Year
  Sex: Female
  Weight: 58.514 kg

DRUGS (1)
  1. ZITHROMAX [Suspect]
     Dosage: 250 MG DAILY PO
     Route: 048

REACTIONS (2)
  - ERYTHEMA MULTIFORME [None]
  - SEPSIS [None]
